FAERS Safety Report 25496643 (Version 2)
Quarter: 2025Q3

REPORT INFORMATION
  Report Type: Report from Study
  Country: US (occurrence: US)
  Receive Date: 20250630
  Receipt Date: 20250714
  Transmission Date: 20251020
  Serious: Yes (Hospitalization)
  Sender: ABBVIE
  Company Number: US-ABBVIE-6348200

PATIENT
  Sex: Female

DRUGS (1)
  1. BOTOX [Suspect]
     Active Substance: ONABOTULINUMTOXINA
     Indication: Migraine
     Route: 065
     Dates: start: 2020, end: 2020

REACTIONS (4)
  - Cerebrovascular accident [Unknown]
  - Migraine [Recovering/Resolving]
  - Seizure [Recovering/Resolving]
  - Monoplegia [Recovered/Resolved]

NARRATIVE: CASE EVENT DATE: 20200101
